FAERS Safety Report 6081540-9 (Version None)
Quarter: 2009Q1

REPORT INFORMATION
  Report Type: 
  Country: None (occurrence: None)
  Receive Date: 20090213
  Receipt Date: 20090130
  Transmission Date: 20090719
  Serious: Yes (Hospitalization)
  Sender: FDA-Public Use
  Company Number: KV200900138

PATIENT
  Sex: Female

DRUGS (1)
  1. MORPHINE SULFATE [Suspect]
     Indication: DRUG USE FOR UNKNOWN INDICATION
     Dosage: ORAL
     Route: 048
     Dates: start: 20080619

REACTIONS (5)
  - CHEST DISCOMFORT [None]
  - DERMATITIS ALLERGIC [None]
  - DYSPNOEA [None]
  - HYPOAESTHESIA [None]
  - PRODUCT QUALITY ISSUE [None]
